FAERS Safety Report 20601318 (Version 1)
Quarter: 2022Q1

REPORT INFORMATION
  Report Type: Report from Study
  Country: US (occurrence: US)
  Receive Date: 20220316
  Receipt Date: 20220316
  Transmission Date: 20220423
  Serious: Yes (Hospitalization)
  Sender: FDA-Public Use
  Company Number: US-GILEAD-2022-0572730

PATIENT
  Sex: Male

DRUGS (2)
  1. AZTREONAM LYSINE [Suspect]
     Active Substance: AZTREONAM LYSINE
     Indication: Pneumonia pseudomonal
     Dosage: 75 MG, TID, VIA ALTERA NEBULIZER SYSTEM ONLY, EVERY OTHER MONTH
     Route: 055
  2. NIVESTYM [FILGRASTIM] [Concomitant]
     Dosage: UNK

REACTIONS (3)
  - Ill-defined disorder [Unknown]
  - Product use issue [Unknown]
  - Off label use [Unknown]
